FAERS Safety Report 13682319 (Version 1)
Quarter: 2017Q2

REPORT INFORMATION
  Report Type: Spontaneous
  Country: US (occurrence: US)
  Receive Date: 20170622
  Receipt Date: 20170622
  Transmission Date: 20170830
  Serious: No
  Sender: FDA-Public Use
  Company Number: None

PATIENT
  Age: 38 Year
  Sex: Female
  Weight: 50.39 kg

DRUGS (1)
  1. ARIPIPRAZOLE 30MG [Suspect]
     Active Substance: ARIPIPRAZOLE
     Indication: BIPOLAR DISORDER
     Route: 048
     Dates: start: 20170520, end: 20170610

REACTIONS (1)
  - Rash [None]

NARRATIVE: CASE EVENT DATE: 20170610
